FAERS Safety Report 9306378 (Version 2)
Quarter: 2013Q2

REPORT INFORMATION
  Report Type: Report from Study
  Country: AU (occurrence: AU)
  Receive Date: 20130523
  Receipt Date: 20130613
  Transmission Date: 20140414
  Serious: No
  Sender: FDA-Public Use
  Company Number: PHHY2013AU051782

PATIENT
  Age: 40 Year
  Sex: Male
  Weight: 71.6 kg

DRUGS (1)
  1. CLOZARIL [Suspect]
     Dosage: 150 MG
     Route: 048
     Dates: start: 20011108, end: 20130523

REACTIONS (2)
  - Drooling [Unknown]
  - White blood cell count decreased [Unknown]
